FAERS Safety Report 7015969-9 (Version None)
Quarter: 2010Q3

REPORT INFORMATION
  Report Type: 
  Country: None (occurrence: None)
  Receive Date: 20100927
  Receipt Date: 20100205
  Transmission Date: 20110219
  Serious: No
  Sender: FDA-Public Use
  Company Number: US-ASTRAZENECA-2010SE05399

PATIENT
  Age: 59 Year
  Sex: Female
  Weight: 56.7 kg

DRUGS (2)
  1. ARIMIDEX [Suspect]
     Route: 048
     Dates: start: 20100101
  2. ZOCOR [Concomitant]

REACTIONS (3)
  - DEPRESSED MOOD [None]
  - NASOPHARYNGITIS [None]
  - THROAT IRRITATION [None]
